FAERS Safety Report 21173812 (Version 1)
Quarter: 2022Q3

REPORT INFORMATION
  Report Type: Spontaneous
  Country: US (occurrence: US)
  Receive Date: 20220804
  Receipt Date: 20220804
  Transmission Date: 20221027
  Serious: No
  Sender: FDA-Public Use
  Company Number: US-PERRIGO-22US005078

PATIENT
  Age: 18 Year
  Sex: Male
  Weight: 136.05 kg

DRUGS (3)
  1. LORATADINE [Suspect]
     Active Substance: LORATADINE
     Indication: Hypersensitivity
     Dosage: 20 MG, SINGLE
     Route: 048
     Dates: start: 20220331, end: 20220331
  2. LORATADINE [Suspect]
     Active Substance: LORATADINE
     Dosage: 30 MG, SINGLE
     Route: 048
     Dates: start: 20220331, end: 20220331
  3. CANNABIS SATIVA SUBSP. INDICA TOP [Concomitant]
     Active Substance: CANNABIS SATIVA SUBSP. INDICA TOP
     Indication: Substance use
     Dosage: UNK
     Route: 065
     Dates: start: 2012

REACTIONS (2)
  - Accidental overdose [Recovered/Resolved]
  - Wrong product administered [Recovered/Resolved]

NARRATIVE: CASE EVENT DATE: 20220331
